FAERS Safety Report 16000872 (Version 4)
Quarter: 2019Q2

REPORT INFORMATION
  Report Type: Spontaneous
  Country: US (occurrence: US)
  Receive Date: 20190225
  Receipt Date: 20190415
  Transmission Date: 20190711
  Serious: Yes (Hospitalization, Other)
  Sender: FDA-Public Use
  Company Number: US-ASTRAZENECA-2018SF64721

PATIENT
  Age: 757 Month
  Sex: Male

DRUGS (32)
  1. DEXILANT [Suspect]
     Active Substance: DEXLANSOPRAZOLE
     Route: 065
     Dates: start: 20100101, end: 20171231
  2. PREVACID 24 HR [Suspect]
     Active Substance: LANSOPRAZOLE
     Route: 065
     Dates: start: 20100101, end: 20171231
  3. NEXIUM [Suspect]
     Active Substance: ESOMEPRAZOLE MAGNESIUM
     Indication: DYSPEPSIA
     Route: 048
     Dates: start: 20100101, end: 20171231
  4. NEXIUM 24HR [Suspect]
     Active Substance: ESOMEPRAZOLE MAGNESIUM
     Route: 048
  5. PRILOSEC [Suspect]
     Active Substance: OMEPRAZOLE MAGNESIUM
     Indication: DYSPEPSIA
     Route: 048
     Dates: start: 20100101, end: 20171231
  6. DEXTROSE. [Concomitant]
     Active Substance: DEXTROSE
     Route: 065
  7. ASPIRIN. [Concomitant]
     Active Substance: ASPIRIN
     Route: 065
  8. LIPITOR [Concomitant]
     Active Substance: ATORVASTATIN CALCIUM
  9. AVANDIA [Concomitant]
     Active Substance: ROSIGLITAZONE MALEATE
  10. PROPOXYPHEN-APAP [Concomitant]
  11. SEVELAMER [Concomitant]
     Active Substance: SEVELAMER
     Route: 065
  12. PRAVASTATIN. [Concomitant]
     Active Substance: PRAVASTATIN
     Route: 065
  13. DIOVAN [Concomitant]
     Active Substance: VALSARTAN
  14. PRANDIN [Concomitant]
     Active Substance: REPAGLINIDE
  15. TORSEMIDE. [Concomitant]
     Active Substance: TORSEMIDE
  16. LANTUS [Concomitant]
     Active Substance: INSULIN GLARGINE
     Route: 065
  17. NOVOLOG [Concomitant]
     Active Substance: INSULIN ASPART
     Route: 065
  18. FLUOXYMESTERONE [Concomitant]
     Active Substance: FLUOXYMESTERONE
  19. PROTONIX [Suspect]
     Active Substance: PANTOPRAZOLE SODIUM
     Route: 065
  20. NEXIUM [Suspect]
     Active Substance: ESOMEPRAZOLE MAGNESIUM
     Indication: DYSPEPSIA
     Route: 065
     Dates: start: 20070522
  21. ZYRTEC [Concomitant]
     Active Substance: CETIRIZINE HYDROCHLORIDE
     Route: 065
  22. NIFEDIPINE. [Concomitant]
     Active Substance: NIFEDIPINE
     Route: 065
  23. DOCUSATE SODIUM. [Concomitant]
     Active Substance: DOCUSATE SODIUM
     Route: 065
  24. EDEX [Concomitant]
     Active Substance: ALPROSTADIL
  25. PRILOSEC OTC [Suspect]
     Active Substance: OMEPRAZOLE MAGNESIUM
     Route: 048
     Dates: start: 20100101, end: 20171231
  26. PREVACID [Suspect]
     Active Substance: LANSOPRAZOLE
     Route: 065
     Dates: start: 20100101, end: 20171231
  27. TRAZODONE [Concomitant]
     Active Substance: TRAZODONE HYDROCHLORIDE
     Route: 065
  28. LOSARTAN. [Concomitant]
     Active Substance: LOSARTAN
     Route: 065
  29. PROVENTIL [Concomitant]
     Active Substance: ALBUTEROL
     Route: 065
  30. SUMATRIPTAN SUCCINATE. [Concomitant]
     Active Substance: SUMATRIPTAN SUCCINATE
     Route: 065
  31. LOTREL [Concomitant]
     Active Substance: AMLODIPINE BESYLATE\BENAZEPRIL HYDROCHLORIDE
  32. CAVERJECT [Concomitant]
     Active Substance: ALPROSTADIL

REACTIONS (6)
  - Hyperparathyroidism secondary [Unknown]
  - Renal injury [Unknown]
  - Chronic kidney disease [Not Recovered/Not Resolved]
  - Nephrogenic anaemia [Unknown]
  - End stage renal disease [Unknown]
  - Acute kidney injury [Not Recovered/Not Resolved]

NARRATIVE: CASE EVENT DATE: 201704
